FAERS Safety Report 4392211-9 (Version None)
Quarter: 2004Q3

REPORT INFORMATION
  Report Type: 
  Country: None (occurrence: None)
  Receive Date: 20040702
  Receipt Date: 20040623
  Transmission Date: 20050211
  Serious: Yes (Hospitalization)
  Sender: FDA-Public Use
  Company Number: 163-20785-04060633

PATIENT
  Age: 56 Year
  Sex: Male

DRUGS (7)
  1. THALOMID [Suspect]
     Indication: MULTIPLE MYELOMA
     Dosage: SEE IMAGE
     Route: 048
     Dates: start: 20040419, end: 20040618
  2. THALOMID [Suspect]
     Indication: MULTIPLE MYELOMA
     Dosage: SEE IMAGE
     Route: 048
     Dates: start: 20040623
  3. DEXAMETHASONE [Suspect]
     Indication: MULTIPLE MYELOMA
     Dosage: 40 MG, DAYS 1-4, ORAL
     Route: 048
     Dates: start: 20040419, end: 20040617
  4. PROTONIX [Concomitant]
  5. COUMADIN [Concomitant]
  6. SEPTRA DS [Concomitant]
  7. ZOMETA [Concomitant]

REACTIONS (4)
  - AMNESIA [None]
  - CHEST DISCOMFORT [None]
  - CONFUSIONAL STATE [None]
  - TREMOR [None]
